FAERS Safety Report 18888255 (Version 2)
Quarter: 2021Q3

REPORT INFORMATION
  Report Type: Spontaneous
  Country: US (occurrence: US)
  Receive Date: 20210212
  Receipt Date: 20210823
  Transmission Date: 20211014
  Serious: No
  Sender: FDA-Public Use
  Company Number: NVSC2021US029573

PATIENT
  Sex: Male

DRUGS (1)
  1. KESIMPTA [Suspect]
     Active Substance: OFATUMUMAB
     Indication: RELAPSING MULTIPLE SCLEROSIS
     Dosage: 20 MG, QD (BENEATH THE SKIN, USUALLY VIA INJECTION)
     Route: 058
     Dates: start: 202101

REACTIONS (2)
  - Abdominal discomfort [Recovered/Resolved]
  - Pyrexia [Recovered/Resolved]
